FAERS Safety Report 15246854 (Version 1)
Quarter: 2018Q3

REPORT INFORMATION
  Report Type: Spontaneous
  Country: US (occurrence: US)
  Receive Date: 20180713
  Receipt Date: 20180713
  Transmission Date: 20181010
  Serious: No
  Sender: FDA-Public Use
  Company Number: None

PATIENT
  Age: 81 Year
  Sex: Female

DRUGS (1)
  1. LETAIRIS [Suspect]
     Active Substance: AMBRISENTAN
     Indication: PULMONARY ARTERIAL HYPERTENSION
     Route: 048
     Dates: start: 20150523

REACTIONS (6)
  - Dizziness [None]
  - Vomiting [None]
  - Vertigo [None]
  - Head injury [None]
  - Visual impairment [None]
  - Nausea [None]

NARRATIVE: CASE EVENT DATE: 20180623
